FAERS Safety Report 7206220-5 (Version None)
Quarter: 2010Q4

REPORT INFORMATION
  Report Type: 
  Country: None (occurrence: None)
  Receive Date: 20101217
  Receipt Date: 20101203
  Transmission Date: 20110411
  Serious: Yes (Hospitalization)
  Sender: FDA-Public Use
  Company Number: 003556

PATIENT
  Sex: Female

DRUGS (13)
  1. CIMZIA [Suspect]
     Indication: RHEUMATOID ARTHRITIS
     Dosage: 200 MG 1X/2 WEEKS, 1 INJECTION EVERY TWO WEEKS SUBCUTANEOUS
     Route: 058
     Dates: start: 20091009, end: 20091204
  2. PREDNISOLONE [Suspect]
     Indication: RHEUMATOID ARTHRITIS
     Dosage: 7.5 MG, DAILY ORAL
     Route: 048
  3. METHOTREXATE [Suspect]
     Indication: RHEUMATOID ARTHRITIS
     Dosage: 2 MG, DAILY ORAL, 6 MG, DAILY, ORAL, 6 MG, DAILY ORAL, 2 MG, DAILY, ORAL
     Dates: end: 20090117
  4. METHOTREXATE [Suspect]
     Indication: RHEUMATOID ARTHRITIS
     Dosage: 2 MG, DAILY ORAL, 6 MG, DAILY, ORAL, 6 MG, DAILY ORAL, 2 MG, DAILY, ORAL
     Dates: end: 20091214
  5. METHOTREXATE [Suspect]
     Indication: RHEUMATOID ARTHRITIS
     Dosage: 2 MG, DAILY ORAL, 6 MG, DAILY, ORAL, 6 MG, DAILY ORAL, 2 MG, DAILY, ORAL
     Dates: end: 20091220
  6. METHOTREXATE [Suspect]
     Indication: RHEUMATOID ARTHRITIS
     Dosage: 2 MG, DAILY ORAL, 6 MG, DAILY, ORAL, 6 MG, DAILY ORAL, 2 MG, DAILY, ORAL
     Dates: start: 20100118
  7. FAMOTIDINE [Concomitant]
  8. BENEXATE [Concomitant]
  9. ALFACALCIDOL [Concomitant]
  10. FOLIC ACID [Concomitant]
  11. ALENDRONATE SODIUM [Concomitant]
  12. DICLOFENAC SODIUM [Concomitant]
  13. MAGNESIUM OXIDE [Concomitant]

REACTIONS (10)
  - ARTHRALGIA [None]
  - ARTHRITIS BACTERIAL [None]
  - EOSINOPHIL COUNT DECREASED [None]
  - GAIT DISTURBANCE [None]
  - MASS [None]
  - MONARTHRITIS [None]
  - OEDEMA PERIPHERAL [None]
  - PYREXIA [None]
  - RHEUMATOID ARTHRITIS [None]
  - SUBCUTANEOUS ABSCESS [None]
